FAERS Safety Report 5742390-3 (Version None)
Quarter: 2008Q2

REPORT INFORMATION
  Report Type: 
  Country: None (occurrence: None)
  Receive Date: 20080519
  Receipt Date: 20080505
  Transmission Date: 20081010
  Serious: Yes (Hospitalization)
  Sender: FDA-Public Use
  Company Number: US-ELI_LILLY_AND_COMPANY-US200805000834

PATIENT
  Sex: Female

DRUGS (2)
  1. FORTEO [Suspect]
  2. XANAX [Concomitant]
     Indication: ANXIETY

REACTIONS (4)
  - CONTUSION [None]
  - DEPRESSION [None]
  - HEAD INJURY [None]
  - PANIC ATTACK [None]
